FAERS Safety Report 18099767 (Version 1)
Quarter: 2020Q3

REPORT INFORMATION
  Report Type: Spontaneous
  Country: HR (occurrence: HR)
  Receive Date: 20200731
  Receipt Date: 20200731
  Transmission Date: 20201103
  Serious: Yes (Other)
  Sender: FDA-Public Use
  Company Number: NVSC2020HR213729

PATIENT
  Age: 72 Year
  Sex: Male

DRUGS (1)
  1. SANVAL [Suspect]
     Active Substance: ZOLPIDEM TARTRATE
     Indication: PRODUCT USED FOR UNKNOWN INDICATION
     Dosage: 50 MG, QD
     Route: 048
     Dates: start: 20200517, end: 20200517

REACTIONS (4)
  - Suicide attempt [Unknown]
  - Loss of consciousness [Unknown]
  - Somnolence [Unknown]
  - Intentional overdose [Unknown]

NARRATIVE: CASE EVENT DATE: 20200517
